FAERS Safety Report 25779268 (Version 2)
Quarter: 2025Q3

REPORT INFORMATION
  Report Type: Report from Study
  Country: EG (occurrence: EG)
  Receive Date: 20250909
  Receipt Date: 20250922
  Transmission Date: 20251021
  Serious: Yes (Hospitalization)
  Sender: BIOGEN
  Company Number: EG-BIOGEN-2025BI01323179

PATIENT
  Age: 26 Year
  Sex: Female

DRUGS (1)
  1. TYSABRI [Suspect]
     Active Substance: NATALIZUMAB
     Indication: Multiple sclerosis
     Dosage: 300MG/15ML IV EVERY MONTH
     Route: 050
     Dates: start: 2024, end: 202505

REACTIONS (6)
  - Multiple sclerosis relapse [Recovered/Resolved]
  - Pulmonary embolism [Unknown]
  - Fall [Recovered/Resolved]
  - Lower limb fracture [Unknown]
  - Deep vein thrombosis [Unknown]
  - Decubitus ulcer [Unknown]

NARRATIVE: CASE EVENT DATE: 20250501
